FAERS Safety Report 10751560 (Version 1)
Quarter: 2015Q1

REPORT INFORMATION
  Report Type: Spontaneous
  Country: None (occurrence: None)
  Receive Date: 20150128
  Receipt Date: 20150128
  Transmission Date: 20150721
  Serious: Yes (Hospitalization)
  Sender: FDA-Public Use
  Company Number: 2015010165

PATIENT
  Age: 74 Year
  Sex: Male

DRUGS (13)
  1. SINTROM 1 MG (ACENOCOUMAROL) [Concomitant]
  2. CIPROXIN 750 (CIPROFLOXACIN HYDROCHLORIDE (FILM-COATED TABLET)) [Suspect]
     Active Substance: CIPROFLOXACIN HYDROCHLORIDE
     Indication: PSEUDOMONAS INFECTION
     Route: 048
     Dates: start: 20141110, end: 20141122
  3. METFIN 850 MG (METFORMIN HYDROCHLORIDE) [Concomitant]
  4. TOREM [Suspect]
     Active Substance: TORSEMIDE
     Dosage: (5 MG, 1 IN 1 D)
     Route: 048
     Dates: end: 20141122
  5. METOLAZON 5 (METOLAZONE (TABLET)) [Suspect]
     Active Substance: METOLAZONE
     Dosage: (2.5 MG, 2 IN 1 WK)
     Route: 048
     Dates: end: 20141122
  6. SIMVASTATIN STREULI 20 MG (SIMVASTATIN) [Concomitant]
  7. PANTOZOL 40 MG (PANTOPRAZOLE SODIUM) [Concomitant]
  8. SERESTA 15 MG (OXAZEPAM) [Concomitant]
  9. AMARYL 2 MG (GLIMEPIRIDE) [Concomitant]
  10. CONCOR 5 MG (BISOPROLOL FUMARATE) [Concomitant]
  11. METHOTREXAT (METHOTREXATE SODIUM) [Suspect]
     Active Substance: METHOTREXATE SODIUM
     Dosage: (1 DOSAGE FORMS, 1 IN 1 WK)
     Route: 058
     Dates: end: 20141122
  12. ENATEC [Suspect]
     Active Substance: ENALAPRIL MALEATE
     Dosage: (10 MG, 2 IN 1 D)
     Route: 048
     Dates: end: 20141122
  13. CALCORT 6 MG (DEFLAZACORT) [Concomitant]

REACTIONS (4)
  - Asthenia [None]
  - Arrhythmia [None]
  - Acute kidney injury [None]
  - Polyuria [None]

NARRATIVE: CASE EVENT DATE: 20141122
